FAERS Safety Report 6832261-3 (Version None)
Quarter: 2010Q3

REPORT INFORMATION
  Report Type: 
  Country: None (occurrence: None)
  Receive Date: 20100712
  Receipt Date: 20100708
  Transmission Date: 20110219
  Serious: Yes (Life-Threatening)
  Sender: FDA-Public Use
  Company Number: IT-ASTRAZENECA-2010SE31778

PATIENT
  Sex: Male

DRUGS (11)
  1. LISINOPRIL AND HYDROCHLOROTHIAZIDE [Suspect]
     Dosage: 20/12.5 MG
     Route: 048
     Dates: end: 20100528
  2. ALDACTONE [Suspect]
     Route: 065
     Dates: end: 20100528
  3. ENALAPRIL MALEATE [Suspect]
     Route: 065
     Dates: start: 20100525, end: 20100528
  4. LASIX [Suspect]
     Route: 065
     Dates: start: 20100525, end: 20100528
  5. OMEPRAZOLE [Concomitant]
  6. CLEXANE [Concomitant]
  7. PLAVIX [Concomitant]
  8. COEFFERALGAN [Concomitant]
  9. ZOLPIDEM [Concomitant]
  10. AUGMENTIN '125' [Concomitant]
  11. INSULIN [Concomitant]

REACTIONS (1)
  - HYPOVOLAEMIC SHOCK [None]
